FAERS Safety Report 5442833-9 (Version None)
Quarter: 2007Q3

REPORT INFORMATION
  Report Type: 
  Country: None (occurrence: None)
  Receive Date: 20070830
  Receipt Date: 20070817
  Transmission Date: 20080115
  Serious: Yes (Death, Hospitalization)
  Sender: FDA-Public Use
  Company Number: 2007001392

PATIENT
  Age: 48 Year
  Sex: Male
  Weight: 104.8 kg

DRUGS (3)
  1. ERLOTINIB (TABLET) [Suspect]
     Indication: GLIOBLASTOMA MULTIFORME
     Dosage: 150 MG (QD), ORAL
     Route: 048
     Dates: start: 20070412, end: 20070425
  2. SORAFENIB [Suspect]
     Indication: GLIOBLASTOMA MULTIFORME
     Dosage: 400 MG (BID), ORAL
     Route: 048
     Dates: start: 20070412, end: 20070425
  3. DECADRON [Concomitant]

REACTIONS (6)
  - DYSPNOEA [None]
  - LARGE INTESTINE PERFORATION [None]
  - PNEUMATOSIS [None]
  - SUDDEN DEATH [None]
  - THROMBOSIS [None]
  - WOUND DEHISCENCE [None]
